FAERS Safety Report 9901303 (Version 2)
Quarter: 2014Q3

REPORT INFORMATION
  Report Type: Spontaneous
  Country: US (occurrence: US)
  Receive Date: 20140217
  Receipt Date: 20140801
  Transmission Date: 20150326
  Serious: Yes (Hospitalization, Other)
  Sender: FDA-Public Use
  Company Number: US-009507513-1402USA007349

PATIENT
  Sex: Female

DRUGS (1)
  1. NUVARING [Suspect]
     Active Substance: ETHINYL ESTRADIOL\ETONOGESTREL
     Dosage: UNK
     Route: 067
     Dates: start: 20120820, end: 20130917

REACTIONS (10)
  - Pulmonary mass [Unknown]
  - Hyperkalaemia [Unknown]
  - Cholecystectomy [Unknown]
  - Atelectasis [Unknown]
  - Anxiety [Unknown]
  - Depression [Unknown]
  - Pulmonary embolism [Unknown]
  - Subcutaneous emphysema [Unknown]
  - Rash [Recovering/Resolving]
  - Hypertension [Unknown]

NARRATIVE: CASE EVENT DATE: 201309
